FAERS Safety Report 13668116 (Version 1)
Quarter: 2017Q2

REPORT INFORMATION
  Report Type: Spontaneous
  Country: US (occurrence: US)
  Receive Date: 20170620
  Receipt Date: 20170620
  Transmission Date: 20170830
  Serious: No
  Sender: FDA-Public Use
  Company Number: US-PFIZER INC-2017266453

PATIENT
  Sex: Female
  Weight: 73 kg

DRUGS (4)
  1. CLIMARA [Concomitant]
     Active Substance: ESTRADIOL
     Indication: HORMONE THERAPY
     Dosage: PATCH APPLIED ONCE A WEEK
     Dates: start: 201704, end: 20170414
  2. DULOXETINE. [Concomitant]
     Active Substance: DULOXETINE
     Indication: DEPRESSION
     Dosage: 60 MG, 1X/DAY
  3. LEVOTHYROXINE SODIUM. [Suspect]
     Active Substance: LEVOTHYROXINE SODIUM
     Indication: HYPOTHYROIDISM
     Dosage: 125 MG, 1X/DAY
  4. PREMARIN [Concomitant]
     Active Substance: ESTROGENS, CONJUGATED
     Indication: HORMONE THERAPY
     Dosage: 30 G, THREE TIMES A WEEK
     Route: 067
     Dates: start: 201704

REACTIONS (4)
  - Fatigue [Unknown]
  - Memory impairment [Unknown]
  - Somnolence [Unknown]
  - Overdose [Unknown]
